FAERS Safety Report 21159468 (Version 4)
Quarter: 2023Q2

REPORT INFORMATION
  Report Type: Spontaneous
  Country: US (occurrence: US)
  Receive Date: 20220802
  Receipt Date: 20230620
  Transmission Date: 20230722
  Serious: Yes (Other)
  Sender: FDA-Public Use
  Company Number: US-PFIZER INC-PV202200010914

PATIENT
  Age: 40 Year
  Sex: Male

DRUGS (1)
  1. BENEFIX [Suspect]
     Active Substance: COAGULATION FACTOR IX RECOMBINANT HUMAN\ISOPROPYL ALCOHOL
     Indication: Haemorrhage
     Dosage: 13608 IU, AS NEEDED (13608 U (+/-10%) IV DAILY AS NEEDED FOR BLEEDING)
     Route: 042

REACTIONS (2)
  - Haemorrhage [Unknown]
  - Epistaxis [Unknown]
